FAERS Safety Report 21670152 (Version 2)
Quarter: 2022Q4

REPORT INFORMATION
  Report Type: Spontaneous
  Country: IT (occurrence: IT)
  Receive Date: 20221201
  Receipt Date: 20221207
  Transmission Date: 20230112
  Serious: Yes (Hospitalization, Other)
  Sender: FDA-Public Use
  Company Number: None

PATIENT
  Age: 81 Year
  Sex: Male

DRUGS (2)
  1. VEKLURY [Suspect]
     Active Substance: REMDESIVIR
     Indication: COVID-19 pneumonia
     Dosage: 600 MG (200 MG THE FIRST DAY, 100 MG ON DAYS 2-5)
     Route: 042
     Dates: start: 20220512, end: 20220516
  2. OXYGEN [Concomitant]
     Active Substance: OXYGEN

REACTIONS (3)
  - Mechanical ventilation [Unknown]
  - COVID-19 pneumonia [Unknown]
  - Drug ineffective [Unknown]

NARRATIVE: CASE EVENT DATE: 20220520
